FAERS Safety Report 5902699-7 (Version None)
Quarter: 2008Q3

REPORT INFORMATION
  Report Type: 
  Country: None (occurrence: None)
  Receive Date: 20080930
  Receipt Date: 20080916
  Transmission Date: 20090109
  Serious: Yes (Disabling)
  Sender: FDA-Public Use
  Company Number: DK-RANBAXY-2008RR-18292

PATIENT
  Sex: Male
  Weight: 108 kg

DRUGS (2)
  1. SIMVASTATIN RANBAXY FILM COATED TABLETS 10MG [Suspect]
     Indication: HYPERCHOLESTEROLAEMIA
     Dosage: 10 MG, UNK
     Route: 048
     Dates: start: 20050715, end: 20080707
  2. CENTYL [Concomitant]
     Indication: DIURETIC THERAPY
     Dosage: UNK
     Route: 048

REACTIONS (1)
  - INTERSTITIAL LUNG DISEASE [None]
